FAERS Safety Report 12764222 (Version 1)
Quarter: 2016Q3

REPORT INFORMATION
  Report Type: Report from Study
  Country: CO (occurrence: CO)
  Receive Date: 20160920
  Receipt Date: 20160920
  Transmission Date: 20161109
  Serious: Yes (Hospitalization)
  Sender: FDA-Public Use
  Company Number: PHHY2016CO129354

PATIENT
  Sex: Female
  Weight: 56 kg

DRUGS (4)
  1. TAMOXIFEN [Concomitant]
     Active Substance: TAMOXIFEN
     Indication: BREAST CANCER
     Dosage: 20 MG, QD
     Route: 048
  2. AFINITOR [Suspect]
     Active Substance: EVEROLIMUS
     Dosage: UNK
     Route: 065
  3. IBANDRONIC ACID [Concomitant]
     Active Substance: IBANDRONIC ACID
     Indication: PRODUCT USED FOR UNKNOWN INDICATION
     Dosage: 6 MG, QW
     Route: 042
  4. AFINITOR [Suspect]
     Active Substance: EVEROLIMUS
     Indication: BREAST CANCER
     Dosage: 5 MG, QD
     Route: 048
     Dates: start: 20120911

REACTIONS (9)
  - Drug dispensing error [Unknown]
  - Stomatitis [Unknown]
  - Dyspnoea [Unknown]
  - Cardiac disorder [Unknown]
  - Inflammation [Unknown]
  - Erythema [Unknown]
  - Feeling of despair [Unknown]
  - Skin wrinkling [Unknown]
  - Skin discolouration [Unknown]
